FAERS Safety Report 5295882-8 (Version None)
Quarter: 2007Q2

REPORT INFORMATION
  Report Type: 
  Country: None (occurrence: None)
  Receive Date: 20070413
  Receipt Date: 20070403
  Transmission Date: 20071010
  Serious: Yes (Death)
  Sender: FDA-Public Use
  Company Number: FR-AVENTIS-200711034FR

PATIENT
  Age: 84 Year
  Sex: Female

DRUGS (6)
  1. LOVENOX [Suspect]
     Indication: ATRIAL FIBRILLATION
     Route: 058
     Dates: start: 20070215, end: 20070219
  2. LOVENOX [Suspect]
     Route: 058
     Dates: start: 20070219
  3. PREVISCAN                          /00789001/ [Suspect]
     Route: 048
     Dates: start: 20070219
  4. CORDARONE [Concomitant]
     Indication: ATRIAL FIBRILLATION
  5. LASILIX                            /00032601/ [Concomitant]
  6. DIFFU K [Concomitant]

REACTIONS (11)
  - BLADDER DISTENSION [None]
  - BLOOD ALKALINE PHOSPHATASE INCREASED [None]
  - BLOOD POTASSIUM DECREASED [None]
  - COMA [None]
  - DRUG INTERACTION [None]
  - HAEMATOMA [None]
  - HAEMOGLOBIN DECREASED [None]
  - HYPOTENSION [None]
  - HYPOVOLAEMIA [None]
  - OVERDOSE [None]
  - PALLOR [None]
